FAERS Safety Report 8653195 (Version 2)
Quarter: 2013Q3

REPORT INFORMATION
  Report Type: Spontaneous
  Country: US (occurrence: None)
  Receive Date: 20120622
  Receipt Date: 20130815
  Transmission Date: 20140515
  Serious: Yes (Hospitalization, Other)
  Sender: FDA-Public Use
  Company Number: ADR-2012-00875

PATIENT
  Age: 32 Year
  Sex: Male

DRUGS (2)
  1. LIORESAL [Suspect]
     Indication: MUSCLE SPASTICITY
     Dosage: 259.1 MCG/DAY
     Route: 037
  2. LIORESAL [Suspect]
     Indication: BRAIN INJURY
     Dosage: 259.1 MCG/DAY
     Route: 037

REACTIONS (4)
  - Device related infection [None]
  - Implant site infection [None]
  - Implant site erythema [None]
  - Implant site pain [None]
